FAERS Safety Report 7261422-7 (Version None)
Quarter: 2011Q1

REPORT INFORMATION
  Report Type: 
  Country: None (occurrence: None)
  Receive Date: 20110130
  Receipt Date: 20100921
  Transmission Date: 20110831
  Serious: No
  Sender: FDA-Public Use
  Company Number: US-ABBOTT-10P-163-0672262-00

PATIENT
  Age: 61 Year
  Sex: Female

DRUGS (1)
  1. HUMIRA [Suspect]
     Indication: PSORIATIC ARTHROPATHY
     Dates: start: 20090701

REACTIONS (7)
  - DYSPNOEA [None]
  - FIBROMYALGIA [None]
  - CHEST PAIN [None]
  - NAUSEA [None]
  - BURNING SENSATION [None]
  - DYSPHAGIA [None]
  - NEUROPATHY PERIPHERAL [None]
